FAERS Safety Report 8147307-2 (Version None)
Quarter: 2012Q1

REPORT INFORMATION
  Report Type: 
  Country: None (occurrence: None)
  Receive Date: 20120218
  Receipt Date: 20110207
  Transmission Date: 20120608
  Serious: No
  Sender: FDA-Public Use
  Company Number: US-ALLERGAN-1101715US

PATIENT
  Sex: Female

DRUGS (1)
  1. BOTULINUM TOXIN TYPE A [Suspect]
     Indication: BLEPHAROSPASM
     Dosage: 100 UNITS, SINGLE
     Route: 047
     Dates: start: 20110202, end: 20110202

REACTIONS (5)
  - RESPIRATORY DISORDER [None]
  - HYPERTENSION [None]
  - HEART RATE INCREASED [None]
  - TOOTHACHE [None]
  - DIZZINESS [None]
